FAERS Safety Report 19735321 (Version 1)
Quarter: 2021Q3

REPORT INFORMATION
  Report Type: Spontaneous
  Country: EG (occurrence: EG)
  Receive Date: 20210823
  Receipt Date: 20210823
  Transmission Date: 20211014
  Serious: Yes (Other)
  Sender: FDA-Public Use
  Company Number: EG-CIPLA LTD.-2021EG05841

PATIENT

DRUGS (2)
  1. FORATEC [Suspect]
     Active Substance: FORMOTEROL FUMARATE
     Indication: ASTHMA
     Dosage: UNK, BID (CONCENTRATION: 12)
     Route: 065
  2. BUDECORT [Suspect]
     Active Substance: BUDESONIDE
     Indication: ASTHMA
     Dosage: UNK, BID (CONCENTRATION: 400)
     Route: 065

REACTIONS (2)
  - Tachycardia [Unknown]
  - Fungal infection [Unknown]
